FAERS Safety Report 25990651 (Version 3)
Quarter: 2025Q4

REPORT INFORMATION
  Report Type: Report from Study
  Country: US (occurrence: None)
  Receive Date: 20251103
  Receipt Date: 20251223
  Transmission Date: 20260118
  Serious: Yes (Hospitalization, Other)
  Sender: UCB
  Company Number: US-UCBSA-2025061625

PATIENT
  Age: 54 Year
  Weight: 107.5 kg

DRUGS (3)
  1. BIMZELX [Suspect]
     Active Substance: BIMEKIZUMAB-BKZX
     Indication: Psoriasis
     Dosage: 320 MILLIGRAM, EV 4 WEEKS
  2. BIMZELX [Suspect]
     Active Substance: BIMEKIZUMAB-BKZX
     Indication: Psoriatic arthropathy
     Dosage: 320 MILLIGRAM, EV 4 WEEKS
  3. CLOPIDOGREL [Concomitant]
     Active Substance: CLOPIDOGREL BISULFATE
     Indication: Product used for unknown indication

REACTIONS (4)
  - Diverticulitis [Not Recovered/Not Resolved]
  - Headache [Unknown]
  - Vision blurred [Unknown]
  - Helicobacter infection [Recovering/Resolving]
